FAERS Safety Report 5284228-7 (Version None)
Quarter: 2007Q2

REPORT INFORMATION
  Report Type: 
  Country: None (occurrence: None)
  Receive Date: 20070403
  Receipt Date: 20070320
  Transmission Date: 20071010
  Serious: Yes (Other)
  Sender: FDA-Public Use
  Company Number: PHEH2007US01215

PATIENT
  Age: 8 Year
  Sex: Female
  Weight: 38.1 kg

DRUGS (6)
  1. TRILEPTAL [Suspect]
     Indication: CONVULSION
     Dosage: 12 MG QAM, 14 MG QPM
     Route: 048
     Dates: start: 20040201
  2. TRILEPTAL [Suspect]
     Dosage: 17 MG QAM, 17 MG QPM
     Route: 048
  3. TRILEPTAL [Suspect]
     Dosage: 12 MG, TID
     Route: 048
     Dates: start: 20070101, end: 20070123
  4. TRILEPTAL [Suspect]
     Dosage: 9 MG, TID
     Route: 048
     Dates: start: 20070123
  5. TRILEPTAL [Suspect]
     Dosage: 18 ML, BID
     Route: 048
     Dates: start: 20061201, end: 20070101
  6. LUPRON [Concomitant]
     Indication: PRECOCIOUS PUBERTY
     Dosage: UNK, 1 X MONTH
     Route: 030
     Dates: start: 20060101

REACTIONS (7)
  - CONVULSION [None]
  - DIZZINESS [None]
  - DRUG TOXICITY [None]
  - HYPOTHYROIDISM [None]
  - PRECOCIOUS PUBERTY [None]
  - THYROXINE DECREASED [None]
  - VOMITING [None]
